FAERS Safety Report 9538859 (Version 1)
Quarter: 2013Q3

REPORT INFORMATION
  Report Type: Spontaneous
  Country: PL (occurrence: PL)
  Receive Date: 20130920
  Receipt Date: 20130920
  Transmission Date: 20140515
  Serious: Yes (Death, Hospitalization)
  Sender: FDA-Public Use
  Company Number: PL-MPIJNJ-2013JNJ000283

PATIENT
  Sex: 0

DRUGS (4)
  1. VELCADE [Suspect]
     Indication: PLASMA CELL MYELOMA
     Dosage: 1.3 MG/M2, UNK
     Route: 058
     Dates: start: 20130222, end: 20130617
  2. DEXAMETHASONE [Suspect]
     Dosage: 20 MG, UNK
     Route: 048
     Dates: start: 20130222, end: 20130618
  3. METOPROLOL [Concomitant]
     Dosage: UNK
     Dates: start: 2005
  4. TRIMETAZIDINE DIHYDROCHLORIDE [Concomitant]
     Dosage: UNK

REACTIONS (1)
  - General physical health deterioration [Fatal]
